FAERS Safety Report 7106815-3 (Version None)
Quarter: 2010Q4

REPORT INFORMATION
  Report Type: 
  Country: None (occurrence: None)
  Receive Date: 20101116
  Receipt Date: 20101026
  Transmission Date: 20110411
  Serious: No
  Sender: FDA-Public Use
  Company Number: US-ABBOTT-10P-163-0682166-00

PATIENT
  Sex: Female
  Weight: 63.56 kg

DRUGS (5)
  1. SIMCOR [Suspect]
     Indication: BLOOD CHOLESTEROL INCREASED
     Dosage: 500/20MG
     Dates: start: 20100730, end: 20100901
  2. SIMCOR [Suspect]
     Dates: start: 20101001
  3. VITAMIN D [Concomitant]
     Indication: HYPOVITAMINOSIS
  4. SYNTHROID [Concomitant]
     Indication: HYPOTHYROIDISM
  5. LISINOPRIL AND HYDROCHLOROTHIAZIDE [Concomitant]
     Indication: HYPERTENSION

REACTIONS (1)
  - DRY THROAT [None]
